FAERS Safety Report 12853798 (Version 1)
Quarter: 2016Q4

REPORT INFORMATION
  Report Type: Spontaneous
  Country: IT (occurrence: IT)
  Receive Date: 20161017
  Receipt Date: 20161017
  Transmission Date: 20170207
  Serious: Yes (Other)
  Sender: FDA-Public Use
  Company Number: PHHY2016IT141268

PATIENT
  Age: 68 Year
  Sex: Female

DRUGS (2)
  1. EXEMESTANE. [Concomitant]
     Active Substance: EXEMESTANE
     Indication: BREAST CANCER METASTATIC
     Dosage: 25 MG, UNK
     Route: 048
  2. AFINITOR [Suspect]
     Active Substance: EVEROLIMUS
     Indication: BREAST CANCER
     Dosage: 10 MG, QD
     Route: 048
     Dates: start: 20160205, end: 20160224

REACTIONS (8)
  - Epistaxis [Recovered/Resolved]
  - Atrial fibrillation [Recovered/Resolved]
  - Skin disorder [Unknown]
  - Atrial fibrillation [Unknown]
  - Skin disorder [Recovered/Resolved]
  - Cystitis [Unknown]
  - Cystitis [Recovered/Resolved]
  - Epistaxis [Unknown]

NARRATIVE: CASE EVENT DATE: 20160218
